FAERS Safety Report 9721381 (Version 1)
Quarter: 2013Q4

REPORT INFORMATION
  Report Type: Spontaneous
  Country: US (occurrence: US)
  Receive Date: 20131129
  Receipt Date: 20131129
  Transmission Date: 20140711
  Serious: No
  Sender: FDA-Public Use
  Company Number: US-PFIZER INC-2013338396

PATIENT
  Age: 36 Year
  Sex: Female
  Weight: 63.49 kg

DRUGS (3)
  1. LYRICA [Suspect]
     Indication: FIBROMYALGIA
     Dosage: 75 MG, 3X/DAY
     Route: 048
     Dates: start: 201004, end: 20131111
  2. IBUPROFEN [Concomitant]
     Dosage: 800 MG, 3X/DAY
  3. TRAMADOL [Concomitant]
     Dosage: 20 MG, 3X/DAY

REACTIONS (1)
  - Drug withdrawal syndrome [Unknown]
